FAERS Safety Report 9587213 (Version 1)
Quarter: 2013Q4

REPORT INFORMATION
  Report Type: Spontaneous
  Country: JP (occurrence: JP)
  Receive Date: 20131003
  Receipt Date: 20131003
  Transmission Date: 20140711
  Serious: Yes (Death)
  Sender: FDA-Public Use
  Company Number: JP-GLAXOSMITHKLINE-B0923864A

PATIENT
  Age: 30 Year
  Sex: Male

DRUGS (4)
  1. ZOVIRAX [Suspect]
     Indication: ENCEPHALOPATHY
     Dosage: 1500MG THREE TIMES PER DAY
     Route: 042
     Dates: start: 20130916, end: 20130920
  2. VFEND [Concomitant]
     Route: 065
  3. ZOSYN [Concomitant]
     Route: 042
  4. UNKNOWN DRUG [Concomitant]
     Indication: CONVULSION PROPHYLAXIS
     Route: 065

REACTIONS (3)
  - Renal failure acute [Fatal]
  - Disseminated intravascular coagulation [Fatal]
  - Renal disorder [Fatal]
